FAERS Safety Report 6596278-9 (Version None)
Quarter: 2010Q1

REPORT INFORMATION
  Report Type: 
  Country: None (occurrence: None)
  Receive Date: 20100223
  Receipt Date: 20100210
  Transmission Date: 20100710
  Serious: Yes (Other)
  Sender: FDA-Public Use
  Company Number: PHHY2010US07758

PATIENT
  Sex: Male

DRUGS (1)
  1. GLEEVEC [Suspect]
     Indication: CHRONIC MYELOID LEUKAEMIA
     Dosage: 400 MG, QD
     Route: 048

REACTIONS (5)
  - APPENDICECTOMY [None]
  - BREAST MASS [None]
  - BREAST PAIN [None]
  - CARCINOID TUMOUR OF THE GASTROINTESTINAL TRACT [None]
  - INTESTINAL RESECTION [None]
